FAERS Safety Report 21735844 (Version 5)
Quarter: 2025Q3

REPORT INFORMATION
  Report Type: Report from Study
  Country: EU (occurrence: EU)
  Receive Date: 20221215
  Receipt Date: 20250801
  Transmission Date: 20251020
  Serious: Yes (Death, Hospitalization, Other)
  Sender: PFIZER
  Company Number: EU-BRISTOL-MYERS SQUIBB COMPANY-2022-145179

PATIENT
  Age: 57 Year
  Sex: Male

DRUGS (13)
  1. METHOTREXATE SODIUM [Suspect]
     Active Substance: METHOTREXATE SODIUM
     Indication: Rheumatoid arthritis
     Dosage: 15 MG, WEEKLY
     Dates: end: 202202
  2. METHOTREXATE SODIUM [Suspect]
     Active Substance: METHOTREXATE SODIUM
     Dates: end: 202202
  3. OLUMIANT [Suspect]
     Active Substance: BARICITINIB
     Dates: start: 201705, end: 201805
  4. OLUMIANT [Suspect]
     Active Substance: BARICITINIB
     Dosage: 4 MG, 1X/DAY
     Dates: start: 201806, end: 20220126
  5. ORENCIA [Suspect]
     Active Substance: ABATACEPT
     Indication: Rheumatoid arthritis
     Route: 042
     Dates: start: 201601
  6. ORENCIA [Suspect]
     Active Substance: ABATACEPT
     Route: 042
     Dates: start: 20220127
  7. TOCILIZUMAB [Suspect]
     Active Substance: TOCILIZUMAB
     Indication: Rheumatoid arthritis
     Dates: start: 201701, end: 201705
  8. FOLIC ACID [Concomitant]
     Active Substance: FOLIC ACID
  9. SIMVASTATIN [Concomitant]
     Active Substance: SIMVASTATIN
  10. ASPIRIN [Concomitant]
     Active Substance: ASPIRIN
  11. PANTOPRAZOLE [Concomitant]
     Active Substance: PANTOPRAZOLE
  12. METAMIZOLE [Concomitant]
     Active Substance: METAMIZOLE
  13. CHOLECALCIFEROL [Concomitant]
     Active Substance: CHOLECALCIFEROL

REACTIONS (15)
  - Pneumocystis jirovecii pneumonia [Fatal]
  - Sepsis [Fatal]
  - Cardiogenic shock [Fatal]
  - Multiple organ dysfunction syndrome [Fatal]
  - Cardiac failure [Fatal]
  - Acute kidney injury [Unknown]
  - Anaemia [Unknown]
  - Pulmonary fibrosis [Unknown]
  - Acute respiratory failure [Unknown]
  - Squamous cell carcinoma of lung [Unknown]
  - Pertussis [Unknown]
  - Bursitis [Unknown]
  - Gastroenteritis [Recovered/Resolved]
  - Spinal osteoarthritis [Unknown]
  - Obesity [Unknown]

NARRATIVE: CASE EVENT DATE: 20210801
